FAERS Safety Report 10279859 (Version 1)
Quarter: 2014Q3

REPORT INFORMATION
  Report Type: Report from Study
  Country: GR (occurrence: GR)
  Receive Date: 20140707
  Receipt Date: 20140707
  Transmission Date: 20150326
  Serious: Yes (Hospitalization)
  Sender: FDA-Public Use
  Company Number: GR-CELGENEUS-066-21660-14064824

PATIENT
  Age: 64 Year
  Sex: Male
  Weight: 97 kg

DRUGS (3)
  1. GLUCOPHAG [Concomitant]
     Indication: DIABETES MELLITUS
     Dosage: 2000 MILLIGRAM
     Route: 048
  2. SOLOSA [Concomitant]
     Active Substance: GLIMEPIRIDE
     Indication: DIABETES MELLITUS
     Dosage: 2 MILLIGRAM
     Route: 048
  3. ABRAXANE [Suspect]
     Active Substance: PACLITAXEL
     Indication: GASTRIC CANCER
     Route: 041
     Dates: start: 20130422, end: 20130422

REACTIONS (2)
  - Anaemia [Recovered/Resolved]
  - Onychomadesis [Recovering/Resolving]

NARRATIVE: CASE EVENT DATE: 20130429
